FAERS Safety Report 26188867 (Version 1)
Quarter: 2025Q4

REPORT INFORMATION
  Report Type: Spontaneous
  Country: US (occurrence: US)
  Receive Date: 20251222
  Receipt Date: 20251222
  Transmission Date: 20260117
  Serious: No
  Sender: CELLTRION
  Company Number: US-CELLTRION INC.-2025US027035

PATIENT

DRUGS (5)
  1. RITUXIMAB [Suspect]
     Active Substance: RITUXIMAB
     Indication: Peripheral T-cell lymphoma unspecified stage IV
     Dosage: HE RECEIVED ONE CYCLE OF RITUXIMAB, CYCLOPHOSPHAMIDE, VINCRISTINE, AND PREDNISONE (R-CHOP)
  2. CYCLOPHOSPHAMIDE [Suspect]
     Active Substance: CYCLOPHOSPHAMIDE
     Indication: Peripheral T-cell lymphoma unspecified stage IV
     Dosage: HE RECEIVED ONE CYCLE OF RITUXIMAB, CYCLOPHOSPHAMIDE, VINCRISTINE, AND PREDNISONE (R-CHOP
  3. VINCRISTINE [Suspect]
     Active Substance: VINCRISTINE
     Indication: Peripheral T-cell lymphoma unspecified stage IV
     Dosage: HE RECEIVED ONE CYCLE OF RITUXIMAB, CYCLOPHOSPHAMIDE, VINCRISTINE, AND PREDNISONE (R-CHOP
  4. PREDNISONE [Suspect]
     Active Substance: PREDNISONE
     Indication: Peripheral T-cell lymphoma unspecified stage IV
     Dosage: HE RECEIVED ONE CYCLE OF RITUXIMAB, CYCLOPHOSPHAMIDE, VINCRISTINE, AND PREDNISONE (R-CHOP)
  5. DEXAMETHASONE [Concomitant]
     Active Substance: DEXAMETHASONE
     Dosage: THE PATIENT WAS STARTED ON DEXAMETHASONE 4 MG EVERY 6 H, WHICH RESULTED IN SYMPTOMATIC IMPROVEMENT

REACTIONS (1)
  - Intentional product use issue [Unknown]
